FAERS Safety Report 13138517 (Version 1)
Quarter: 2017Q1

REPORT INFORMATION
  Report Type: Spontaneous
  Country: US (occurrence: US)
  Receive Date: 20170123
  Receipt Date: 20170123
  Transmission Date: 20170428
  Serious: Yes (Other)
  Sender: FDA-Public Use
  Company Number: None

PATIENT
  Age: 86 Year
  Sex: Female
  Weight: 72.58 kg

DRUGS (4)
  1. CALCIUM [Concomitant]
     Active Substance: CALCIUM
  2. VALSARTAN 160MG [Suspect]
     Active Substance: VALSARTAN
     Indication: HYPERTENSION
     Dosage: ?          QUANTITY:/ WEAR AT;?
     Route: 048
     Dates: start: 20161212, end: 20161212
  3. ONE-A-DAY VITAMIN [Concomitant]
  4. MAGNESIUM [Concomitant]
     Active Substance: MAGNESIUM

REACTIONS (7)
  - Cough [None]
  - Diarrhoea [None]
  - Pyrexia [None]
  - Lethargy [None]
  - Malaise [None]
  - Asthenia [None]
  - Muscle spasms [None]

NARRATIVE: CASE EVENT DATE: 20161212
